FAERS Safety Report 6223512-7 (Version None)
Quarter: 2009Q2

REPORT INFORMATION
  Report Type: 
  Country: None (occurrence: None)
  Receive Date: 20090610
  Receipt Date: 20090602
  Transmission Date: 20091009
  Serious: Yes (Other)
  Sender: FDA-Public Use
  Company Number: DSA_33758_2009

PATIENT
  Sex: Male

DRUGS (13)
  1. XENAZINE [Suspect]
     Indication: HUNTINGTON'S CHOREA
     Dosage: (12.5 MG BID)
     Dates: start: 20081229
  2. ARICEPT [Concomitant]
  3. CENTRUM /00554501/ [Concomitant]
  4. COENZYME Q10 /00517201/ [Concomitant]
  5. HALDOL [Concomitant]
  6. ATIVAN [Concomitant]
  7. MELATONIN [Concomitant]
  8. RISPERDAL [Concomitant]
  9. SENNA-MINT WAF [Concomitant]
  10. TYLENOL (CAPLET) [Concomitant]
  11. VITAMIN D [Concomitant]
  12. OXYCODONE HCL [Concomitant]
  13. ZYPREXA [Concomitant]

REACTIONS (2)
  - DYSKINESIA [None]
  - PHYSICAL ASSAULT [None]
